FAERS Safety Report 12421949 (Version 1)
Quarter: 2016Q2

REPORT INFORMATION
  Report Type: Report from Study
  Country: FR (occurrence: FR)
  Receive Date: 20160531
  Receipt Date: 20160531
  Transmission Date: 20160815
  Serious: Yes (Death)
  Sender: FDA-Public Use
  Company Number: PHHO2012FR022017

PATIENT
  Age: 63 Year
  Sex: Female
  Weight: 41 kg

DRUGS (8)
  1. TRAMETINIB [Suspect]
     Active Substance: TRAMETINIB
     Indication: NON-SMALL CELL LUNG CANCER
  2. NUROFEN ACTIVE [Concomitant]
     Indication: PAIN
     Dosage: 1 DF, TID
     Route: 048
     Dates: start: 20111210, end: 20111222
  3. SERUM PHYSIOLOGICAL [Concomitant]
     Active Substance: SODIUM CHLORIDE
     Indication: FLUID REPLACEMENT
     Dosage: 125 ML, QD
     Route: 042
     Dates: start: 20111223
  4. DUROGESIC [Concomitant]
     Active Substance: FENTANYL
     Indication: PAIN
     Dosage: 75 MG, QD
     Route: 062
     Dates: start: 20111104
  5. MOTILIUM M [Concomitant]
     Indication: VOMITING
     Dosage: 1 DF, TID
     Route: 048
     Dates: start: 20111213
  6. PRIMPERAN [Concomitant]
     Active Substance: METOCLOPRAMIDE HYDROCHLORIDE
     Indication: VOMITING
     Dosage: 20 MG, TID
     Route: 048
     Dates: start: 20011220, end: 20111222
  7. SERUM PHYSIOLOGICAL [Concomitant]
     Active Substance: SODIUM CHLORIDE
     Indication: FLUID REPLACEMENT
     Dosage: 500 ML, QID
     Route: 042
     Dates: start: 20111223
  8. PLITICAN [Concomitant]
     Active Substance: ALIZAPRIDE HYDROCHLORIDE
     Indication: VOMITING
     Dosage: 50 MG, QD
     Route: 042
     Dates: start: 20111223

REACTIONS (1)
  - Death [Fatal]

NARRATIVE: CASE EVENT DATE: 20111224
